FAERS Safety Report 8322386-8 (Version None)
Quarter: 2012Q2

REPORT INFORMATION
  Report Type: 
  Country: None (occurrence: None)
  Receive Date: 20120430
  Receipt Date: 20120420
  Transmission Date: 20120825
  Serious: Yes (Hospitalization)
  Sender: FDA-Public Use
  Company Number: US-ASTRAZENECA-2011SE72402

PATIENT
  Age: 45 Year
  Sex: Female
  Weight: 65.8 kg

DRUGS (1)
  1. SEROQUEL [Suspect]
     Indication: BIPOLAR DISORDER
     Dosage: 400 MG AT NIGHT AND 50 TO 100 MG IN THE MORNING
     Route: 048

REACTIONS (7)
  - FEELING ABNORMAL [None]
  - PALPITATIONS [None]
  - INTENTIONAL DRUG MISUSE [None]
  - IRRITABILITY [None]
  - MALAISE [None]
  - INSOMNIA [None]
  - HUNGER [None]
